FAERS Safety Report 21930760 (Version 1)
Quarter: 2023Q1

REPORT INFORMATION
  Report Type: Report from Study
  Country: US (occurrence: US)
  Receive Date: 20230131
  Receipt Date: 20230131
  Transmission Date: 20230418
  Serious: No
  Sender: FDA-Public Use
  Company Number: US-002147023-NVSC2023US019641

PATIENT
  Sex: Female

DRUGS (2)
  1. KISQALI [Suspect]
     Active Substance: RIBOCICLIB
     Indication: Product used for unknown indication
     Dosage: UNK UNK, QD (1 PILL)
     Route: 048
     Dates: start: 20221024
  2. KISQALI [Suspect]
     Active Substance: RIBOCICLIB
     Dosage: UNK UNK, QD (2 PILL)
     Route: 048

REACTIONS (1)
  - Nausea [Unknown]
